FAERS Safety Report 8971303 (Version 1)
Quarter: 2012Q4

REPORT INFORMATION
  Report Type: 
  Country: DK (occurrence: AU)
  Receive Date: 20121218
  Receipt Date: 20121218
  Transmission Date: 20130627
  Serious: Yes (Hospitalization)
  Sender: FDA-Public Use
  Company Number: AU-FRI-1000041094

PATIENT
  Age: 46 Year
  Sex: Male

DRUGS (4)
  1. ESCITALOPRAM [Suspect]
     Dosage: 20 mg
     Dates: end: 20121002
  2. DIAZEPAM [Suspect]
     Dosage: 5 mg
     Dates: end: 20121002
  3. MIRTAZAPINE [Suspect]
     Dosage: 60 mg
     Route: 048
     Dates: start: 20120101, end: 20121002
  4. PRAZOSIN HYDROCHLORIDE [Suspect]
     Dosage: 1 mg
     Dates: end: 20121002

REACTIONS (7)
  - Headache [Recovered/Resolved]
  - Chills [Recovered/Resolved]
  - Diplopia [Recovered/Resolved]
  - Ataxia [Recovered/Resolved]
  - Syncope [Recovered/Resolved]
  - Pyrexia [Recovered/Resolved]
  - Dysarthria [Recovered/Resolved]
